FAERS Safety Report 18506830 (Version 1)
Quarter: 2020Q4

REPORT INFORMATION
  Report Type: Spontaneous
  Country: US (occurrence: US)
  Receive Date: 20201114
  Receipt Date: 20201114
  Transmission Date: 20210114
  Serious: No
  Sender: FDA-Public Use
  Company Number: None

PATIENT
  Age: 55 Year
  Sex: Female
  Weight: 68.85 kg

DRUGS (5)
  1. TOLTERODINE TARTRATE ER 4MG [Concomitant]
     Active Substance: TOLTERODINE TARTRATE
  2. CALCIUM [Concomitant]
     Active Substance: CALCIUM
  3. FOS [Concomitant]
  4. COMBIPATCH (ESTRADIOL/NORETHINDRONE ACETATE TRANSDERMAL SYSTEM) [Suspect]
     Active Substance: ESTRADIOL\NORETHINDRONE ACETATE
     Indication: MENOPAUSAL SYMPTOMS
     Dosage: ?          QUANTITY:1 PATCH(ES);OTHER FREQUENCY:EVERY 3 DAYS/4 DAY;?
     Route: 062
  5. MAGNESIUM [Concomitant]
     Active Substance: MAGNESIUM

REACTIONS (2)
  - Abdominal pain [None]
  - Application site coldness [None]

NARRATIVE: CASE EVENT DATE: 20200603
